FAERS Safety Report 7425414-7 (Version None)
Quarter: 2011Q2

REPORT INFORMATION
  Report Type: 
  Country: None (occurrence: None)
  Receive Date: 20110415
  Receipt Date: 20110415
  Transmission Date: 20111010
  Serious: Yes (Other)
  Sender: FDA-Public Use
  Company Number: None

PATIENT
  Age: 48 Year
  Sex: Female
  Weight: 86.1834 kg

DRUGS (1)
  1. LEVOFLOXACIN [Suspect]
     Indication: PNEUMONIA
     Dosage: 1 TAB DAILY PO
     Route: 048
     Dates: start: 20110323, end: 20110324

REACTIONS (9)
  - RASH [None]
  - ARTHRALGIA [None]
  - GAIT DISTURBANCE [None]
  - TENDON PAIN [None]
  - FEELING ABNORMAL [None]
  - SWELLING [None]
  - NEUROPATHY PERIPHERAL [None]
  - DYSPHAGIA [None]
  - INADEQUATE ANALGESIA [None]
